FAERS Safety Report 5942300-X (Version None)
Quarter: 2008Q4

REPORT INFORMATION
  Report Type: 
  Country: None (occurrence: None)
  Receive Date: 20081105
  Receipt Date: 20081021
  Transmission Date: 20090506
  Serious: Yes (Other)
  Sender: FDA-Public Use
  Company Number: FR-GENENTECH-254769

PATIENT
  Sex: Female
  Weight: 63 kg

DRUGS (6)
  1. RITUXIMAB [Suspect]
     Indication: B-CELL LYMPHOMA
     Dosage: 700 MG, Q3W
     Route: 042
     Dates: start: 20051124
  2. RITUXIMAB [Suspect]
     Dosage: UNK, Q2W
     Dates: start: 20060622
  3. CYCLOPHOSPHAMIDE [Suspect]
     Indication: B-CELL LYMPHOMA
     Dosage: 1300 MG, UNK
     Route: 042
     Dates: start: 20051124
  4. DOXORUBICIN HCL [Suspect]
     Indication: B-CELL LYMPHOMA
     Dosage: 90 MG, UNK
     Route: 042
     Dates: start: 20051124
  5. VINCRISTINE [Suspect]
     Indication: B-CELL LYMPHOMA
     Dosage: 2 MG, UNK
     Route: 042
     Dates: start: 20051124
  6. PREDNISONE TAB [Suspect]
     Indication: B-CELL LYMPHOMA
     Dosage: 80 MG, UNK
     Route: 042
     Dates: start: 20051124

REACTIONS (1)
  - CARPAL TUNNEL SYNDROME [None]
